FAERS Safety Report 9355750 (Version 3)
Quarter: 2013Q3

REPORT INFORMATION
  Report Type: Spontaneous
  Country: JP (occurrence: JP)
  Receive Date: 20130619
  Receipt Date: 20130717
  Transmission Date: 20140515
  Serious: No
  Sender: FDA-Public Use
  Company Number: JP-009507513-1305JPN000146

PATIENT
  Age: 7 Year
  Sex: Female
  Weight: 20 kg

DRUGS (3)
  1. SINGULAIR FINE GRANULES 4MG [Suspect]
     Indication: ASTHMA
     Dosage: 4 MG, QD
     Route: 048
     Dates: start: 201202, end: 20120731
  2. SINGULAIR [Suspect]
     Indication: ASTHMA
     Dosage: 5 MG, QD
     Route: 048
     Dates: start: 20120403, end: 201301
  3. PULMICORT [Concomitant]
     Indication: ASTHMA
     Dosage: 0.5 MG, QD
     Route: 055
     Dates: start: 20120403

REACTIONS (1)
  - Pain in extremity [Recovered/Resolved]
